FAERS Safety Report 8316324-1 (Version None)
Quarter: 2012Q2

REPORT INFORMATION
  Report Type: 
  Country: None (occurrence: None)
  Receive Date: 20120427
  Receipt Date: 20120420
  Transmission Date: 20120825
  Serious: No
  Sender: FDA-Public Use
  Company Number: US-PFIZER INC-2012098524

PATIENT
  Sex: Female
  Weight: 71.65 kg

DRUGS (3)
  1. LYRICA [Suspect]
     Dosage: 75 MG, 1X/DAY
     Route: 048
     Dates: end: 20120201
  2. LYRICA [Suspect]
     Dosage: 75 MG, 2X/DAY
     Route: 048
     Dates: start: 20120201, end: 20120301
  3. LYRICA [Suspect]
     Indication: NERVE INJURY
     Dosage: 75 MG, 1X/DAY
     Route: 048
     Dates: start: 20080101

REACTIONS (8)
  - IMPAIRED DRIVING ABILITY [None]
  - PAIN [None]
  - BLISTER [None]
  - SOMNOLENCE [None]
  - HEAD INJURY [None]
  - FEELING DRUNK [None]
  - DRUG INEFFECTIVE [None]
  - NEURALGIA [None]
